FAERS Safety Report 20526460 (Version 1)
Quarter: 2022Q1

REPORT INFORMATION
  Report Type: Report from Study
  Country: IT (occurrence: IT)
  Receive Date: 20220228
  Receipt Date: 20220228
  Transmission Date: 20220423
  Serious: Yes (Death, Other)
  Sender: FDA-Public Use
  Company Number: IT-NOVARTISPH-NVSC2021IT292043

PATIENT
  Age: 18 Year
  Sex: Male
  Weight: 58 kg

DRUGS (2)
  1. TAFINLAR [Suspect]
     Active Substance: DABRAFENIB MESYLATE
     Indication: Metastatic malignant melanoma
     Dosage: 125 MG, BID
     Route: 048
     Dates: start: 20210528, end: 20211025
  2. TRAMETINIB [Suspect]
     Active Substance: TRAMETINIB
     Indication: Metastatic malignant melanoma
     Dosage: 1.5 MG, QD
     Route: 048
     Dates: start: 20210528, end: 20211025

REACTIONS (4)
  - Death [Fatal]
  - Metastatic malignant melanoma [Unknown]
  - Malignant neoplasm progression [Unknown]
  - Metastases to central nervous system [Not Recovered/Not Resolved]

NARRATIVE: CASE EVENT DATE: 20211025
